FAERS Safety Report 5736622-5 (Version None)
Quarter: 2008Q2

REPORT INFORMATION
  Report Type: 
  Country: None (occurrence: None)
  Receive Date: 20080513
  Receipt Date: 20080503
  Transmission Date: 20081010
  Serious: Yes (Other)
  Sender: FDA-Public Use
  Company Number: BR-PFIZER INC-2007101924

PATIENT
  Sex: Male

DRUGS (2)
  1. EXUBERA [Suspect]
     Indication: DIABETES MELLITUS
     Route: 055
     Dates: start: 20070518, end: 20071020
  2. LANTUS [Concomitant]
     Dates: start: 20051201

REACTIONS (2)
  - BLINDNESS [None]
  - THERAPY REGIMEN CHANGED [None]
